FAERS Safety Report 4822517-8 (Version None)
Quarter: 2005Q4

REPORT INFORMATION
  Report Type: 
  Country: None (occurrence: None)
  Receive Date: 20051108
  Receipt Date: 20051027
  Transmission Date: 20060501
  Serious: Yes (Death)
  Sender: FDA-Public Use
  Company Number: NSADSS2003009906

PATIENT
  Sex: Female

DRUGS (10)
  1. REMICADE [Suspect]
     Route: 041
  2. REMICADE [Suspect]
     Indication: RHEUMATOID ARTHRITIS
     Route: 041
  3. PLAQUENIL [Concomitant]
  4. METHOTREXATE [Concomitant]
  5. PREDNISONE [Concomitant]
  6. TOPROL-XL [Concomitant]
  7. VERAPAMIL [Concomitant]
  8. THYROID TAB [Concomitant]
  9. TYLENOL (CAPLET) [Concomitant]
  10. ASPIRIN [Concomitant]

REACTIONS (2)
  - ACUTE RESPIRATORY FAILURE [None]
  - LUNG NEOPLASM MALIGNANT [None]
